FAERS Safety Report 8430707-0 (Version None)
Quarter: 2012Q2

REPORT INFORMATION
  Report Type: 
  Country: None (occurrence: None)
  Receive Date: 20120323
  Receipt Date: 20110607
  Transmission Date: 20120825
  Serious: Yes (Other)
  Sender: FDA-Public Use
  Company Number: 163-21880-11061086

PATIENT
  Age: 80 Year
  Sex: Male

DRUGS (10)
  1. POTASSIUM CHLORIDE [Concomitant]
  2. MULTIVITAMIN [Concomitant]
  3. FOLIC ACID [Concomitant]
  4. OMEGA FISH OIL (FISH OIL) [Concomitant]
  5. GABAPENTIN [Concomitant]
  6. QUESTRAN [Concomitant]
  7. PROCRIT [Concomitant]
  8. TYLENOL W/ CODEINE (PANADEINE CO) [Concomitant]
  9. REVLIMID [Suspect]
     Indication: MYELODYSPLASTIC SYNDROME
     Dosage: 5 MG, 1 IN 1 D, PO
     Route: 048
     Dates: start: 20090501
  10. MECLIZINE [Concomitant]

REACTIONS (1)
  - BONE MARROW FAILURE [None]
